FAERS Safety Report 4694321-5 (Version None)
Quarter: 2005Q2

REPORT INFORMATION
  Report Type: 
  Country: None (occurrence: None)
  Receive Date: 20050614
  Receipt Date: 20050228
  Transmission Date: 20051028
  Serious: No
  Sender: FDA-Public Use
  Company Number: USA050391961

PATIENT
  Age: 63 Year
  Sex: Male
  Weight: 102 kg

DRUGS (4)
  1. CIALIS [Suspect]
     Dosage: 20 MG
     Dates: start: 20040901
  2. LISINOPRIL [Concomitant]
  3. ATENOLOL [Concomitant]
  4. FLOMAX MR (TAMSULOSIN HYDROCHLORIDE) [Concomitant]

REACTIONS (2)
  - BACK PAIN [None]
  - MOBILITY DECREASED [None]
